FAERS Safety Report 16694343 (Version 2)
Quarter: 2019Q3

REPORT INFORMATION
  Report Type: Spontaneous
  Country: US (occurrence: US)
  Receive Date: 20190812
  Receipt Date: 20190925
  Transmission Date: 20191004
  Serious: Yes (Other)
  Sender: FDA-Public Use
  Company Number: US-UCBSA-2019032901

PATIENT
  Age: 51 Year
  Sex: Female
  Weight: 78 kg

DRUGS (1)
  1. CIMZIA [Suspect]
     Active Substance: CERTOLIZUMAB PEGOL
     Indication: PSORIATIC ARTHROPATHY
     Dosage: 400 MILLIGRAM, EV 4 WEEKS
     Route: 058
     Dates: start: 20190401

REACTIONS (9)
  - Decreased immune responsiveness [Unknown]
  - Hypovitaminosis [Recovered/Resolved]
  - Intervertebral disc degeneration [Unknown]
  - Upper respiratory tract infection [Recovered/Resolved]
  - Neuropathy peripheral [Unknown]
  - Spinal stenosis [Unknown]
  - Sinus disorder [Recovered/Resolved]
  - Pain [Unknown]
  - Psoriasis [Not Recovered/Not Resolved]

NARRATIVE: CASE EVENT DATE: 2019
